FAERS Safety Report 10086119 (Version 1)
Quarter: 2014Q2

REPORT INFORMATION
  Report Type: Spontaneous
  Country: None (occurrence: None)
  Receive Date: 20140415
  Receipt Date: 20140415
  Transmission Date: 20141212
  Serious: Yes (Life-Threatening, Hospitalization)
  Sender: FDA-Public Use
  Company Number: 09-AUR-09026

PATIENT
  Sex: Female

DRUGS (5)
  1. ZIDOVUDINE [Suspect]
     Indication: HIV INFECTION
  2. LAMIVUDINE [Suspect]
     Indication: HIV INFECTION
  3. NELFINAVIR [Suspect]
     Indication: HIV INFECTION
  4. AMOXICILLIN/CLAVULANIC ACID (AMOXI-CLAVUANICO) [Concomitant]
  5. GENTAMICIN (GENTAMICIN) [Concomitant]

REACTIONS (9)
  - Necrotising colitis [None]
  - Trisomy 21 [None]
  - Foetal exposure during pregnancy [None]
  - Hypotonia neonatal [None]
  - Impaired gastric emptying [None]
  - Haematochezia [None]
  - Intestinal dilatation [None]
  - Pneumatosis [None]
  - Portal venous gas [None]
